FAERS Safety Report 7402064-X (Version None)
Quarter: 2011Q2

REPORT INFORMATION
  Report Type: 
  Country: None (occurrence: None)
  Receive Date: 20110408
  Receipt Date: 20101027
  Transmission Date: 20111010
  Serious: Yes (Hospitalization)
  Sender: FDA-Public Use
  Company Number: US-BAYER-201029620NA

PATIENT
  Age: 31 Year
  Sex: Female
  Weight: 95.238 kg

DRUGS (20)
  1. YASMIN [Suspect]
     Indication: PRODUCT USED FOR UNKNOWN INDICATION
     Route: 048
     Dates: start: 20041001, end: 20050501
  2. CEFTIN [Concomitant]
     Dosage: UNK
     Dates: start: 20050624
  3. BACTRIM [Concomitant]
  4. PREVACID [Concomitant]
     Dosage: 30 MG, BID
  5. PROTONIX [Concomitant]
     Dosage: UNK
     Dates: start: 20050101
  6. IMITREX [Concomitant]
     Dosage: UNK
     Dates: start: 20050101
  7. LASIX [Concomitant]
     Dosage: 80 MG, BID FOR 3 DAYS
  8. PREDNISONE [Concomitant]
     Dosage: UNK
     Dates: start: 20050101
  9. RENAGEL [Concomitant]
     Dosage: UNK
     Dates: start: 20050101
  10. CIPRO [Concomitant]
     Dosage: UNK
     Dates: start: 20050101
  11. PLAQUENIL [Concomitant]
     Dosage: 600 MG, DAILY
  12. CELLCEPT [Concomitant]
     Dosage: 500 MG,
     Dates: start: 20050101
  13. CELLCEPT [Concomitant]
     Dosage: 1000 MG, BID, DALY
  14. RENAGEL [Concomitant]
     Dosage: 800 MG, TID
  15. PREDNISONE [Concomitant]
     Dosage: 50 MG, FOR 3 DAYS
  16. POTASSIUM [Concomitant]
     Dosage: UNK
     Dates: start: 20050101
  17. RESPIRATORY SYSTEM [Concomitant]
     Dosage: UNK
     Dates: start: 20050101
  18. VITAFOL [FOLIC ACID] [Concomitant]
     Dosage: UNK
     Dates: start: 20040101
  19. ALBUTEROL INHALER [Concomitant]
  20. LASIX [Concomitant]
     Dosage: DAILY DOSE 20 MG
     Dates: start: 20050101

REACTIONS (3)
  - PAIN IN EXTREMITY [None]
  - DEEP VEIN THROMBOSIS [None]
  - OEDEMA PERIPHERAL [None]
